FAERS Safety Report 23769219 (Version 6)
Quarter: 2024Q2

REPORT INFORMATION
  Report Type: Spontaneous
  Country: CA (occurrence: CA)
  Receive Date: 20240422
  Receipt Date: 20240529
  Transmission Date: 20240716
  Serious: Yes (Other)
  Sender: FDA-Public Use
  Company Number: CA-PFIZER INC-202300396869

PATIENT
  Age: 53 Year
  Sex: Male

DRUGS (11)
  1. RUXIENCE [Suspect]
     Active Substance: RITUXIMAB-PVVR
     Indication: Glomerulonephritis membranous
     Dosage: 1000 MG, Q 2 WEEKS X 2 DOSES (1000 MG DAY 1)
     Route: 042
     Dates: start: 20240416
  2. RUXIENCE [Suspect]
     Active Substance: RITUXIMAB-PVVR
     Dosage: 1000 MG, Q 2 WEEKS X 2 DOSES (1000 MG DAY 1)
     Route: 042
     Dates: start: 20240523
  3. ATORVASTATIN [Concomitant]
     Active Substance: ATORVASTATIN
     Dosage: 10 MG, UNKNOWN FREQUENCY
     Route: 065
  4. COLCHICINE [Concomitant]
     Active Substance: COLCHICINE
     Dosage: 1 DF, 0.3MG (UNKNOWN FREQUENCY
     Route: 065
  5. CYCLOSPORINE [Concomitant]
     Active Substance: CYCLOSPORINE
     Dosage: 100 MG, UNKNOWN FREQUENCY
     Route: 065
  6. DAPAGLIFLOZIN [Concomitant]
     Active Substance: DAPAGLIFLOZIN
     Dosage: 10 MG, UNKNOWN FREQUENCY
     Route: 065
  7. FISH OIL [Concomitant]
     Active Substance: FISH OIL
     Dosage: 1200 MG, UNKNOWN FREQUENCY
     Route: 065
  8. ZEAXANTHIN [Concomitant]
     Active Substance: ZEAXANTHIN
     Dosage: 1 DF, LUTEIN 25MG WITH 5 MG ZEAXANTHIN
     Route: 065
  9. PERINDOPRIL [Concomitant]
     Active Substance: PERINDOPRIL
     Dosage: 12 MG, UNKNOWN FREQUENCY
     Route: 065
  10. CHOLECALCIFEROL [Concomitant]
     Active Substance: CHOLECALCIFEROL
     Dosage: 1000 IU, 1X/DAY
  11. ZEAXANTHIN [Concomitant]
     Active Substance: ZEAXANTHIN
     Dosage: 1 DF, LUTEIN 25MG WITH 5 MG ZEAXANTHIN

REACTIONS (10)
  - Pruritus [Recovered/Resolved]
  - Ear pruritus [Recovered/Resolved]
  - Throat irritation [Recovered/Resolved]
  - Pyrexia [Recovered/Resolved]
  - Oropharyngeal pain [Recovering/Resolving]
  - Cough [Recovering/Resolving]
  - Rhinorrhoea [Recovering/Resolving]
  - Illness [Unknown]
  - Off label use [Unknown]
  - Inappropriate schedule of product administration [Unknown]

NARRATIVE: CASE EVENT DATE: 20240101
